FAERS Safety Report 6354544-6 (Version None)
Quarter: 2009Q3

REPORT INFORMATION
  Report Type: 
  Country: None (occurrence: None)
  Receive Date: 20090914
  Receipt Date: 20090909
  Transmission Date: 20100115
  Serious: Yes (Death, Hospitalization)
  Sender: FDA-Public Use
  Company Number: BR-BRISTOL-MYERS SQUIBB COMPANY-14720973

PATIENT
  Age: 60 Year
  Sex: Male

DRUGS (2)
  1. ORENCIA [Suspect]
     Indication: RHEUMATOID ARTHRITIS
     Dosage: LAST DOSE OF STUDY MEDICATION ON AUG-2008
     Route: 042
     Dates: start: 20050427, end: 20090601
  2. PREDNISONE [Suspect]

REACTIONS (3)
  - PNEUMONIA [None]
  - PULMONARY MYCOSIS [None]
  - SEPSIS [None]
